FAERS Safety Report 13509492 (Version 1)
Quarter: 2017Q2

REPORT INFORMATION
  Report Type: Spontaneous
  Country: US (occurrence: US)
  Receive Date: 20170503
  Receipt Date: 20170503
  Transmission Date: 20170830
  Serious: No
  Sender: FDA-Public Use
  Company Number: US-SA-2017SA033794

PATIENT
  Age: 67 Year
  Sex: Male
  Weight: 50.8 kg

DRUGS (4)
  1. PRALUENT [Suspect]
     Active Substance: ALIROCUMAB
     Indication: BLOOD CHOLESTEROL INCREASED
     Dosage: DOSE:75 MILLIGRAM(S)/MILLILITRE
     Route: 058
     Dates: start: 20160901
  2. ASA [Concomitant]
     Active Substance: ASPIRIN
  3. ALIROCUMAB PREFILLED PEN [Concomitant]
     Active Substance: ALIROCUMAB
     Indication: BLOOD CHOLESTEROL INCREASED
     Dates: start: 20160901
  4. ATENOLOL. [Concomitant]
     Active Substance: ATENOLOL

REACTIONS (5)
  - Mood swings [Unknown]
  - Weight decreased [Unknown]
  - Aggression [Unknown]
  - Decreased appetite [Unknown]
  - Stress [Unknown]

NARRATIVE: CASE EVENT DATE: 20161201
